FAERS Safety Report 8030402-6 (Version None)
Quarter: 2012Q1

REPORT INFORMATION
  Report Type: 
  Country: None (occurrence: None)
  Receive Date: 20120109
  Receipt Date: 20120109
  Transmission Date: 20120608
  Serious: Yes (Other)
  Sender: FDA-Public Use
  Company Number: None

PATIENT
  Age: 40 Year
  Sex: Female
  Weight: 70.306 kg

DRUGS (2)
  1. MIRENA [Suspect]
     Indication: CONTRACEPTION
     Dosage: 20 MCG
     Route: 015
     Dates: start: 20111101, end: 20120107
  2. MIRENA [Suspect]
     Indication: DYSMENORRHOEA
     Dosage: 20 MCG
     Route: 015
     Dates: start: 20111101, end: 20120107

REACTIONS (8)
  - ANTINUCLEAR ANTIBODY POSITIVE [None]
  - ABDOMINAL PAIN [None]
  - TENOSYNOVITIS STENOSANS [None]
  - ALOPECIA [None]
  - VITAMIN D DEFICIENCY [None]
  - DEPRESSION [None]
  - ARTHRALGIA [None]
  - MENORRHAGIA [None]
